FAERS Safety Report 12244644 (Version 1)
Quarter: 2016Q2

REPORT INFORMATION
  Report Type: Spontaneous
  Country: US (occurrence: None)
  Receive Date: 20160406
  Receipt Date: 20160406
  Transmission Date: 20160815
  Serious: Yes (Death, Life-Threatening, Hospitalization, Disabling)
  Sender: FDA-Public Use
  Company Number: None

PATIENT
  Age: 89 Year
  Sex: Female
  Weight: 59.88 kg

DRUGS (2)
  1. IMDUR [Suspect]
     Active Substance: ISOSORBIDE MONONITRATE
     Indication: CORONARY ARTERY OCCLUSION
     Route: 048
     Dates: start: 20160317, end: 20160328
  2. SANA LAXATIVE [Concomitant]

REACTIONS (2)
  - Cardiac failure congestive [None]
  - Heart rate increased [None]

NARRATIVE: CASE EVENT DATE: 20160320
